FAERS Safety Report 11782329 (Version 1)
Quarter: 2015Q4

REPORT INFORMATION
  Report Type: Spontaneous
  Country: US (occurrence: US)
  Receive Date: 20151127
  Receipt Date: 20151127
  Transmission Date: 20160305
  Serious: No
  Sender: FDA-Public Use
  Company Number: US-LUPIN PHARMACEUTICALS INC.-E2B_00003303

PATIENT
  Age: 4 Year
  Sex: Male
  Weight: 17.71 kg

DRUGS (2)
  1. CEFDINIR FOR ORAL SUSPENSION USP 125 MG/5 ML [Suspect]
     Active Substance: CEFDINIR
     Indication: PNEUMONIA
     Dates: start: 20150304, end: 20150308
  2. ZYRTEC [Concomitant]
     Active Substance: CETIRIZINE HYDROCHLORIDE
     Indication: HYPERSENSITIVITY

REACTIONS (2)
  - Hypersensitivity [Unknown]
  - Rash [Unknown]

NARRATIVE: CASE EVENT DATE: 20150307
